FAERS Safety Report 25548865 (Version 1)
Quarter: 2025Q3

REPORT INFORMATION
  Report Type: Spontaneous
  Country: US (occurrence: None)
  Receive Date: 20250711
  Receipt Date: 20250711
  Transmission Date: 20251020
  Serious: Yes (Hospitalization)
  Sender: FDA-CTU
  Company Number: None

PATIENT
  Sex: Female

DRUGS (1)
  1. AIMOVIG [Suspect]
     Active Substance: ERENUMAB-AOOE
     Indication: Migraine
     Route: 058
     Dates: start: 20230131

REACTIONS (5)
  - Drug effect less than expected [None]
  - Seizure [None]
  - Migraine [None]
  - Cardiac disorder [None]
  - Electrolyte imbalance [None]
